FAERS Safety Report 5295716-1 (Version None)
Quarter: 2007Q1

REPORT INFORMATION
  Report Type: 
  Country: None (occurrence: None)
  Receive Date: 20070116
  Receipt Date: 20060711
  Transmission Date: 20070707
  Serious: Yes (Other)
  Sender: FDA-Public Use
  Company Number: HQWYE894313JUL06

PATIENT
  Sex: Female

DRUGS (3)
  1. PREMPRO [Suspect]
  2. PREMARIN [Suspect]
     Dosage: .625 MG, 24 MOS. (2 YEARS)
     Dates: start: 19951219, end: 19970801
  3. PROVERA [Suspect]
     Dosage: 2.5 MG

REACTIONS (1)
  - BREAST CANCER [None]
